FAERS Safety Report 8448901-1 (Version None)
Quarter: 2012Q2

REPORT INFORMATION
  Report Type: 
  Country: None (occurrence: None)
  Receive Date: 20120619
  Receipt Date: 20120612
  Transmission Date: 20120825
  Serious: Yes (Hospitalization)
  Sender: FDA-Public Use
  Company Number: US-GLAXOSMITHKLINE-A0981212A

PATIENT
  Age: 3 Month
  Sex: Female

DRUGS (1)
  1. FLOLAN [Suspect]
     Indication: PRODUCT USED FOR UNKNOWN INDICATION
     Dosage: 13.5NGKM UNKNOWN
     Route: 065
     Dates: start: 20120508

REACTIONS (1)
  - STAPHYLOCOCCAL INFECTION [None]
